FAERS Safety Report 9372446 (Version 1)
Quarter: 2013Q2

REPORT INFORMATION
  Report Type: Spontaneous
  Country: US (occurrence: US)
  Receive Date: 20130627
  Receipt Date: 20130627
  Transmission Date: 20140414
  Serious: No
  Sender: FDA-Public Use
  Company Number: US-MYLANLABS-2012S1024582

PATIENT
  Age: 48 Year
  Sex: Male

DRUGS (8)
  1. CLOZAPINE TABLETS [Suspect]
     Indication: SCHIZOPHRENIA
     Dates: end: 20121031
  2. CLOZAPINE TABLETS [Suspect]
     Indication: SCHIZOPHRENIA
     Dates: start: 20121031, end: 20121112
  3. CLOZAPINE TABLETS [Suspect]
     Indication: SCHIZOPHRENIA
     Dates: start: 20121112, end: 20121117
  4. CLOZAPINE TABLETS [Suspect]
     Indication: SCHIZOPHRENIA
     Dates: start: 20121117, end: 20121123
  5. CLOZAPINE TABLETS [Suspect]
     Indication: SCHIZOPHRENIA
     Dates: start: 20121123
  6. AMBIEN [Concomitant]
     Indication: INSOMNIA
     Dosage: PRN
     Route: 048
  7. COGENTIN [Concomitant]
     Indication: EXTRAPYRAMIDAL DISORDER
     Route: 048
  8. DEPAKOTE [Concomitant]
     Indication: CONVULSION
     Route: 048

REACTIONS (1)
  - Drug level increased [Not Recovered/Not Resolved]
